FAERS Safety Report 16483594 (Version 5)
Quarter: 2019Q4

REPORT INFORMATION
  Report Type: Spontaneous
  Country: US (occurrence: US)
  Receive Date: 20190627
  Receipt Date: 20191121
  Transmission Date: 20200122
  Serious: No
  Sender: FDA-Public Use
  Company Number: US-PFIZER INC-2019274055

PATIENT
  Age: 77 Year
  Sex: Male
  Weight: 132 kg

DRUGS (8)
  1. INSULIN [Concomitant]
     Active Substance: INSULIN NOS
     Indication: DIABETES MELLITUS
  2. INSULIN [Concomitant]
     Active Substance: INSULIN NOS
     Indication: CARDIAC DISORDER
     Dosage: 5 DF, UNK
  3. GABAPENTIN. [Suspect]
     Active Substance: GABAPENTIN
     Indication: DIABETES MELLITUS
     Dosage: 800 MG, 3X/DAY
     Route: 048
  4. GABAPENTIN. [Suspect]
     Active Substance: GABAPENTIN
     Indication: DIABETIC NEUROPATHY
  5. INSULIN [Concomitant]
     Active Substance: INSULIN NOS
     Indication: DIABETIC NEUROPATHY
  6. INSULIN [Concomitant]
     Active Substance: INSULIN NOS
     Indication: BLOOD PRESSURE INCREASED
  7. INSULIN [Concomitant]
     Active Substance: INSULIN NOS
     Indication: GASTROOESOPHAGEAL REFLUX DISEASE
  8. INSULIN [Concomitant]
     Active Substance: INSULIN NOS
     Indication: THYROID DISORDER

REACTIONS (3)
  - Intentional product misuse [Unknown]
  - Drug ineffective for unapproved indication [Recovered/Resolved]
  - Off label use [Recovered/Resolved]
